FAERS Safety Report 5836326-4 (Version None)
Quarter: 2008Q3

REPORT INFORMATION
  Report Type: 
  Country: None (occurrence: None)
  Receive Date: 20080807
  Receipt Date: 20080728
  Transmission Date: 20090109
  Serious: Yes (Other)
  Sender: FDA-Public Use
  Company Number: US-JNJFOC-20080706975

PATIENT
  Sex: Female
  Weight: 63.5 kg

DRUGS (2)
  1. FENTANYL TRANSDERMAL SYSTEM [Suspect]
     Indication: NECK PAIN
     Route: 062
  2. PROZAC [Concomitant]
     Indication: DEPRESSION
     Route: 048

REACTIONS (3)
  - DRUG TOXICITY [None]
  - ROAD TRAFFIC ACCIDENT [None]
  - TREATMENT NONCOMPLIANCE [None]
